FAERS Safety Report 21354359 (Version 2)
Quarter: 2022Q3

REPORT INFORMATION
  Report Type: Spontaneous
  Country: US (occurrence: US)
  Receive Date: 20220920
  Receipt Date: 20220926
  Transmission Date: 20221026
  Serious: No
  Sender: FDA-Public Use
  Company Number: US-BAYER-2022A129031

PATIENT
  Age: 64 Year
  Sex: Male

DRUGS (1)
  1. KERENDIA [Suspect]
     Active Substance: FINERENONE
     Dosage: 10 MG
     Dates: start: 20220619, end: 20220913

REACTIONS (2)
  - Joint swelling [None]
  - Discomfort [None]
